FAERS Safety Report 12237001 (Version 1)
Quarter: 2016Q2

REPORT INFORMATION
  Report Type: Spontaneous
  Country: US (occurrence: None)
  Receive Date: 20160404
  Receipt Date: 20160404
  Transmission Date: 20160815
  Serious: Yes (Hospitalization)
  Sender: FDA-Public Use
  Company Number: None

PATIENT
  Age: 66 Year
  Sex: Male
  Weight: 132.7 kg

DRUGS (2)
  1. METFORMIN [Suspect]
     Active Substance: METFORMIN HYDROCHLORIDE
     Indication: DIABETES MELLITUS
     Route: 048
     Dates: start: 20031202, end: 20130713
  2. BUMETANIDE. [Suspect]
     Active Substance: BUMETANIDE
     Indication: CARDIAC FAILURE CONGESTIVE
     Route: 048
     Dates: start: 20100922

REACTIONS (7)
  - Acute kidney injury [None]
  - Shock [None]
  - Lactic acidosis [None]
  - Sepsis [None]
  - Haemodynamic instability [None]
  - Acute respiratory failure [None]
  - Metabolic acidosis [None]

NARRATIVE: CASE EVENT DATE: 20130713
